FAERS Safety Report 25422545 (Version 1)
Quarter: 2025Q2

REPORT INFORMATION
  Report Type: Spontaneous
  Country: US (occurrence: None)
  Receive Date: 20250610
  Receipt Date: 20250610
  Transmission Date: 20250716
  Serious: Yes (Hospitalization)
  Sender: FDA-CTU
  Company Number: None

PATIENT
  Age: 80 Year
  Sex: Male

DRUGS (1)
  1. WARFARIN SODIUM [Suspect]
     Active Substance: WARFARIN SODIUM
     Indication: Heart valve replacement
     Route: 048
     Dates: start: 20250515, end: 20250524

REACTIONS (3)
  - Anaemia [None]
  - Haematoma [None]
  - International normalised ratio increased [None]

NARRATIVE: CASE EVENT DATE: 20250524
